FAERS Safety Report 17044154 (Version 1)
Quarter: 2019Q4

REPORT INFORMATION
  Report Type: Spontaneous
  Country: US (occurrence: US)
  Receive Date: 20191115
  Receipt Date: 20191115
  Transmission Date: 20200122
  Serious: Yes (Disabling, Other)
  Sender: FDA-Public Use
  Company Number: None

PATIENT
  Age: 78 Year
  Sex: Male
  Weight: 90 kg

DRUGS (1)
  1. ALFUZOSIN HCL ER TABS 10MG GEN [Suspect]
     Active Substance: ALFUZOSIN HYDROCHLORIDE
     Indication: URINARY TRACT DISORDER
     Dosage: ?          QUANTITY:1 TABLET(S);?
     Route: 048
     Dates: start: 20191025, end: 20191114

REACTIONS (2)
  - Product dispensing error [None]
  - Product commingling [None]

NARRATIVE: CASE EVENT DATE: 20191025
